FAERS Safety Report 9184288 (Version 1)
Quarter: 2012Q4

REPORT INFORMATION
  Report Type: 
  Country: US (occurrence: US)
  Receive Date: 20121031
  Receipt Date: 20121031
  Transmission Date: 20130627
  Serious: Yes (Hospitalization)
  Sender: FDA-Public Use
  Company Number: PHEH2012US020400

PATIENT
  Age: 58 None
  Sex: Female

DRUGS (12)
  1. AFINITOR [Suspect]
     Dosage: 10 mg, UNK
     Dates: start: 20121003
  2. EXEMESTANE [Concomitant]
     Dosage: 25 mg, UNK
  3. LEVOTHYROXINE [Concomitant]
     Dosage: 25 ug, QD
  4. CELEBREX [Concomitant]
     Dosage: 200 mg, UNK
  5. BEFORPLEX [Concomitant]
     Dosage: 300 mg, UNK
  6. BEFORPLEX [Concomitant]
     Dosage: 150 mg, UNK
  7. NUVIGIL [Concomitant]
     Dosage: 250 mg, UNK
  8. ALPRAZOLAM [Concomitant]
     Dosage: 0.5 UNK, UNK
  9. DEXALENIENS [Concomitant]
     Dosage: 60 mg, UNK
  10. NEFAZODONE [Concomitant]
     Dosage: 150 mg, UNK
  11. ZOLPIDEM [Concomitant]
     Dosage: 10 mg, UNK
  12. HYDROCODONE [Concomitant]

REACTIONS (8)
  - Loss of consciousness [Unknown]
  - Dehydration [Unknown]
  - Stomatitis [Unknown]
  - Aphagia [Unknown]
  - Oral pain [Unknown]
  - Dry eye [Unknown]
  - Fungal infection [Unknown]
  - Dyspnoea [Unknown]
